FAERS Safety Report 21816740 (Version 1)
Quarter: 2023Q1

REPORT INFORMATION
  Report Type: Spontaneous
  Country: FR (occurrence: FR)
  Receive Date: 20230104
  Receipt Date: 20230104
  Transmission Date: 20230418
  Serious: Yes (Other)
  Sender: FDA-Public Use
  Company Number: None

PATIENT
  Age: 61 Year
  Sex: Male

DRUGS (1)
  1. AUBAGIO [Suspect]
     Active Substance: TERIFLUNOMIDE
     Indication: Multiple sclerosis
     Dosage: 14 MG 4X 1 TABLET OF 14MG IN THE EVENINGS
     Route: 048
     Dates: start: 20170801

REACTIONS (1)
  - Raynaud^s phenomenon [Not Recovered/Not Resolved]
